FAERS Safety Report 5679372-6 (Version None)
Quarter: 2008Q1

REPORT INFORMATION
  Report Type: 
  Country: None (occurrence: None)
  Receive Date: 20080325
  Receipt Date: 20080314
  Transmission Date: 20080703
  Serious: Yes (Hospitalization)
  Sender: FDA-Public Use
  Company Number: GB-ELI_LILLY_AND_COMPANY-GB200802005485

PATIENT
  Age: 60 Year
  Sex: Female

DRUGS (4)
  1. PROZAC [Suspect]
     Dosage: UNK, UNKNOWN
     Route: 065
  2. METHYLENE BLUE [Concomitant]
     Indication: PARATHYROIDECTOMY
     Dosage: 7.5 MG/KG, UNKNOWN
     Route: 042
  3. BECLOMETHASONE DIPROPIONATE [Concomitant]
     Dosage: UNK, UNKNOWN
     Route: 065
  4. CO-PROXAMOL [Concomitant]
     Dosage: UNK, UNKNOWN
     Route: 065

REACTIONS (3)
  - DRUG INTERACTION [None]
  - SEROTONIN SYNDROME [None]
  - VOMITING [None]
